FAERS Safety Report 21644432 (Version 1)
Quarter: 2022Q4

REPORT INFORMATION
  Report Type: Spontaneous
  Country: DE (occurrence: DE)
  Receive Date: 20221125
  Receipt Date: 20221125
  Transmission Date: 20230113
  Serious: Yes (Life-Threatening, Congenital Anomaly, Other)
  Sender: FDA-Public Use
  Company Number: DE-002147023-PHBS1999DE10501

PATIENT
  Sex: Female
  Weight: 3.2 kg

DRUGS (2)
  1. DICLOFENAC SODIUM [Suspect]
     Active Substance: DICLOFENAC SODIUM
     Indication: Foetal exposure during pregnancy
     Dosage: MATERNAL DOSE: 75 MG TWICE DAILY IN A SLOW-RELASE PREPARATION
     Route: 064
  2. HEPARIN [Suspect]
     Active Substance: HEPARIN SODIUM
     Indication: Foetal exposure during pregnancy
     Dosage: UNK
     Route: 064

REACTIONS (5)
  - Newborn persistent pulmonary hypertension [Recovered/Resolved]
  - Tricuspid valve incompetence [Unknown]
  - Ductus arteriosus premature closure [Unknown]
  - Apgar score low [Unknown]
  - Foetal exposure during pregnancy [Unknown]
